FAERS Safety Report 10356079 (Version 2)
Quarter: 2014Q3

REPORT INFORMATION
  Report Type: Spontaneous
  Country: US (occurrence: US)
  Receive Date: 20140801
  Receipt Date: 20140919
  Transmission Date: 20150326
  Serious: No
  Sender: FDA-Public Use
  Company Number: US-BIOGENIDEC-2014BI075715

PATIENT
  Sex: Female

DRUGS (1)
  1. AVONEX [Suspect]
     Active Substance: INTERFERON BETA-1A
     Indication: MULTIPLE SCLEROSIS
     Route: 030
     Dates: start: 20110627

REACTIONS (7)
  - Mobility decreased [Recovered/Resolved]
  - Abasia [Recovered/Resolved]
  - Aphagia [Recovered/Resolved]
  - Muscle spasms [Recovered/Resolved]
  - General symptom [Not Recovered/Not Resolved]
  - Multiple sclerosis [Recovered/Resolved]
  - Psychotic disorder [Recovered/Resolved]

NARRATIVE: CASE EVENT DATE: 2014
